FAERS Safety Report 21809168 (Version 2)
Quarter: 2024Q2

REPORT INFORMATION
  Report Type: Report from Study
  Country: US (occurrence: US)
  Receive Date: 20230103
  Receipt Date: 20240509
  Transmission Date: 20240715
  Serious: Yes (Other)
  Sender: FDA-Public Use
  Company Number: US-ABBVIE-4222770

PATIENT
  Sex: Female

DRUGS (1)
  1. HUMIRA [Suspect]
     Active Substance: ADALIMUMAB
     Indication: Rheumatoid arthritis
     Route: 058
     Dates: start: 20220221

REACTIONS (10)
  - Interstitial lung disease [Unknown]
  - Therapeutic product effect incomplete [Unknown]
  - Coeliac disease [Unknown]
  - Musculoskeletal stiffness [Unknown]
  - Anaemia [Not Recovered/Not Resolved]
  - Influenza [Unknown]
  - Pain [Unknown]
  - Bronchitis [Unknown]
  - Joint swelling [Unknown]
  - Swelling [Unknown]
